FAERS Safety Report 18029813 (Version 2)
Quarter: 2020Q3

REPORT INFORMATION
  Report Type: Spontaneous
  Country: US (occurrence: US)
  Receive Date: 20200715
  Receipt Date: 20200818
  Transmission Date: 20201103
  Serious: Yes (Hospitalization)
  Sender: FDA-Public Use
  Company Number: US-FRESENIUS KABI-FK202007106

PATIENT
  Age: 53 Year
  Sex: Female

DRUGS (3)
  1. RUCAPARIB [Concomitant]
     Active Substance: RUCAPARIB
     Indication: PRODUCT USED FOR UNKNOWN INDICATION
     Dosage: CYCLE1,DAY 18
     Route: 065
  2. IRINOTECAN [Concomitant]
     Active Substance: IRINOTECAN
     Indication: PRODUCT USED FOR UNKNOWN INDICATION
     Dosage: NAL?IRINOTECAN
     Route: 065
  3. FLUOROURACIL INJECTION, USP [Suspect]
     Active Substance: FLUOROURACIL
     Indication: PRODUCT USED FOR UNKNOWN INDICATION
     Dosage: CYCLE 1 DAY 15
     Route: 042
     Dates: start: 20200526

REACTIONS (2)
  - Large intestinal obstruction [Recovered/Resolved]
  - Abdominal pain [Recovered/Resolved]
